FAERS Safety Report 5124972-5 (Version None)
Quarter: 2006Q4

REPORT INFORMATION
  Report Type: 
  Country: None (occurrence: None)
  Receive Date: 20061011
  Receipt Date: 20061006
  Transmission Date: 20070319
  Serious: Yes (Hospitalization)
  Sender: FDA-Public Use
  Company Number: CA-GLAXOSMITHKLINE-A0622782A

PATIENT
  Age: 50 Year
  Sex: Male

DRUGS (2)
  1. AVANDAMET [Suspect]
     Indication: DRUG USE FOR UNKNOWN INDICATION
     Route: 065
  2. TYLENOL W/ CODEINE NO. 3 [Suspect]
     Indication: DRUG USE FOR UNKNOWN INDICATION
     Route: 065

REACTIONS (6)
  - CIRCULATORY COLLAPSE [None]
  - FALL [None]
  - HAEMORRHAGE [None]
  - HEPATIC CIRRHOSIS [None]
  - LIVER DISORDER [None]
  - VOMITING [None]
